FAERS Safety Report 11066492 (Version 1)
Quarter: 2015Q2

REPORT INFORMATION
  Report Type: Spontaneous
  Country: JP (occurrence: None)
  Receive Date: 20150423
  Receipt Date: 20150423
  Transmission Date: 20150821
  Serious: Yes (Life-Threatening, Hospitalization, Other)
  Sender: FDA-Public Use
  Company Number: 2004JP001497

PATIENT
  Age: 31 Year
  Sex: Male

DRUGS (7)
  1. PROGRAF [Suspect]
     Active Substance: TACROLIMUS\TACROLIMUS ANHYDROUS
     Indication: LIVER TRANSPLANT
     Dates: start: 20020926, end: 20030608
  2. METHYLPREDNISOLONE SODIUM SUCCINATE. [Concomitant]
     Active Substance: METHYLPREDNISOLONE SODIUM SUCCINATE
  3. ZOVIRAX [Concomitant]
     Active Substance: ACYCLOVIR
  4. PROGRAF [Suspect]
     Active Substance: TACROLIMUS\TACROLIMUS ANHYDROUS
     Indication: IMMUNOSUPPRESSANT DRUG THERAPY
     Dates: start: 20020926, end: 20030608
  5. PREDNISOLONE. [Concomitant]
     Active Substance: PREDNISOLONE
  6. DENOSINE (ADENOSINE TRIIPHOSPHATE) [Concomitant]
  7. VENOGLOBULIN (IMMUNOGLOBULIN HUMAN NORMAL) [Concomitant]

REACTIONS (9)
  - Rash [None]
  - Cytomegalovirus infection [None]
  - Cardiac arrest [None]
  - Ventricular tachycardia [None]
  - Transplant rejection [None]
  - Immunosuppressant drug level decreased [None]
  - Lymphoma [None]
  - Purpura [None]
  - Post transplant lymphoproliferative disorder [None]

NARRATIVE: CASE EVENT DATE: 20021022
